FAERS Safety Report 12184463 (Version 1)
Quarter: 2016Q1

REPORT INFORMATION
  Report Type: Spontaneous
  Country: CH (occurrence: CH)
  Receive Date: 20160316
  Receipt Date: 20160316
  Transmission Date: 20160526
  Serious: Yes (Other)
  Sender: FDA-Public Use
  Company Number: CH-PFIZER INC-2016159570

PATIENT
  Age: 30 Year
  Sex: Female

DRUGS (1)
  1. CABERGOLINE. [Suspect]
     Active Substance: CABERGOLINE
     Dosage: SINGLE DOSE
     Route: 048

REACTIONS (4)
  - Generalised tonic-clonic seizure [Unknown]
  - Thunderclap headache [Unknown]
  - Encephalopathy [Unknown]
  - Vasoconstriction [Unknown]
